FAERS Safety Report 4916976-X (Version None)
Quarter: 2006Q1

REPORT INFORMATION
  Report Type: 
  Country: None (occurrence: None)
  Receive Date: 20060221
  Receipt Date: 20060211
  Transmission Date: 20060701
  Serious: Yes (Hospitalization)
  Sender: FDA-Public Use
  Company Number: US-KINGPHARMUSA00001-K200600201

PATIENT
  Age: 76 Year
  Sex: Male
  Weight: 100 kg

DRUGS (8)
  1. ALTACE [Suspect]
     Indication: CARDIAC DISORDER
     Dosage: 10 MG, QD
     Route: 048
     Dates: start: 20020101, end: 20060210
  2. OMEPRAZOLE [Concomitant]
  3. FUROSEMIDE [Concomitant]
     Indication: FLUID RETENTION
  4. THYROID TAB [Concomitant]
     Indication: THYROID DISORDER
     Dosage: .15 MG, UNK
  5. AMBIEN [Concomitant]
     Indication: SLEEP DISORDER
     Dosage: UNK, QHS
  6. NEBULIZER MEDICATION [Concomitant]
     Dosage: UNK, UNK
  7. LYRICA [Concomitant]
     Indication: LIMB DISCOMFORT
     Dosage: 50 MG, UNK
  8. CRESTOR [Concomitant]

REACTIONS (5)
  - DYSPHAGIA [None]
  - GASTRIC DISORDER [None]
  - OEDEMA MOUTH [None]
  - ORAL PAIN [None]
  - SWOLLEN TONGUE [None]
